FAERS Safety Report 21087309 (Version 2)
Quarter: 2023Q1

REPORT INFORMATION
  Report Type: Spontaneous
  Country: US (occurrence: None)
  Receive Date: 20220715
  Receipt Date: 20230201
  Transmission Date: 20230417
  Serious: Yes (Other)
  Sender: FDA-Public Use
  Company Number: US-ROCHE-3136768

PATIENT
  Age: 68 Year
  Sex: Female

DRUGS (1)
  1. OCREVUS [Suspect]
     Active Substance: OCRELIZUMAB
     Indication: Multiple sclerosis
     Dosage: STRENGTH 300MG/10ML
     Route: 042
     Dates: start: 20220111

REACTIONS (2)
  - Multiple sclerosis relapse [Unknown]
  - Decreased interest [Unknown]
